FAERS Safety Report 23172984 (Version 1)
Quarter: 2023Q4

REPORT INFORMATION
  Report Type: Spontaneous
  Country: None (occurrence: US)
  Receive Date: 20231110
  Receipt Date: 20231110
  Transmission Date: 20240110
  Serious: Yes (Other)
  Sender: FDA-Public Use
  Company Number: US-Jiangsu Hengrui Medicine Co., Ltd.-2148095

PATIENT
  Sex: Female

DRUGS (7)
  1. DAPTOMYCIN [Suspect]
     Active Substance: DAPTOMYCIN
     Indication: Product used for unknown indication
     Route: 041
  2. AMIKACIN [Suspect]
     Active Substance: AMIKACIN
     Route: 041
  3. DOXYCYCLINE [Suspect]
     Active Substance: DOXYCYCLINE
  4. CEFEPIME [Suspect]
     Active Substance: CEFEPIME HYDROCHLORIDE
  5. MEROPENEM [Suspect]
     Active Substance: MEROPENEM
     Route: 041
  6. LINEZOLID [Suspect]
     Active Substance: LINEZOLID
     Route: 041
  7. TIGECYCLINE [Suspect]
     Active Substance: TIGECYCLINE
     Route: 041

REACTIONS (3)
  - Cauda equina syndrome [Unknown]
  - Gastrointestinal disorder [Unknown]
  - Hypersensitivity [Unknown]
